FAERS Safety Report 15168405 (Version 2)
Quarter: 2018Q3

REPORT INFORMATION
  Report Type: Spontaneous
  Country: JP (occurrence: JP)
  Receive Date: 20180719
  Receipt Date: 20180903
  Transmission Date: 20181010
  Serious: Yes (Hospitalization)
  Sender: FDA-Public Use
  Company Number: JP-ROCHE-2156126

PATIENT
  Age: 74 Year
  Sex: Female
  Weight: 42 kg

DRUGS (10)
  1. RESCALMIN [Concomitant]
     Dosage: DOSE INTERVAL UNCERTAINTY
     Route: 041
     Dates: start: 20171221, end: 20180328
  2. ALOXI [Concomitant]
     Active Substance: PALONOSETRON HYDROCHLORIDE
     Dosage: DOSE INTERVAL UNCERTAINTY
     Route: 041
     Dates: start: 20171221, end: 20180328
  3. PACLITAXEL. [Concomitant]
     Active Substance: PACLITAXEL
     Indication: MALIGNANT PERITONEAL NEOPLASM
     Route: 041
     Dates: start: 20171221, end: 20180328
  4. CARBOPLATIN. [Concomitant]
     Active Substance: CARBOPLATIN
     Indication: MALIGNANT PERITONEAL NEOPLASM
     Route: 041
     Dates: start: 20171221, end: 20180328
  5. CARBOPLATIN. [Concomitant]
     Active Substance: CARBOPLATIN
     Route: 065
     Dates: start: 20150707, end: 20151113
  6. FAMOTIDINE. [Concomitant]
     Active Substance: FAMOTIDINE
     Dosage: DOSE INTERVAL UNCERTAINTY
     Route: 041
     Dates: start: 20171221, end: 20180328
  7. PROEMEND [Concomitant]
     Active Substance: FOSAPREPITANT
     Dosage: DOSE INTERVAL UNCERTAINTY
     Route: 041
     Dates: start: 20171221, end: 20180328
  8. AVASTIN [Suspect]
     Active Substance: BEVACIZUMAB
     Indication: MALIGNANT PERITONEAL NEOPLASM
     Route: 041
     Dates: start: 20171221, end: 20180328
  9. PACLITAXEL. [Concomitant]
     Active Substance: PACLITAXEL
     Route: 065
     Dates: start: 20150707, end: 20151113
  10. DEXART [Concomitant]
     Active Substance: DEXAMETHASONE SODIUM PHOSPHATE
     Dosage: DOSE INTERVAL UNCERTAINTY
     Route: 041
     Dates: start: 20171221, end: 20180328

REACTIONS (2)
  - Abdominal abscess [Recovered/Resolved]
  - Ileal perforation [Recovered/Resolved]

NARRATIVE: CASE EVENT DATE: 20180411
